FAERS Safety Report 24237832 (Version 1)
Quarter: 2024Q3

REPORT INFORMATION
  Report Type: Spontaneous
  Country: US (occurrence: US)
  Receive Date: 20240822
  Receipt Date: 20240822
  Transmission Date: 20241017
  Serious: Yes (Death, Life-Threatening, Hospitalization, Other)
  Sender: DR REDDYS
  Company Number: None

PATIENT
  Age: 53 Year
  Sex: Female

DRUGS (1)
  1. TACROLIMUS [Suspect]
     Active Substance: TACROLIMUS
     Indication: Immunosuppressant drug therapy

REACTIONS (10)
  - Neuroendocrine carcinoma of the cervix [Fatal]
  - Cervix carcinoma stage IV [Fatal]
  - Metastases to peritoneum [Fatal]
  - Metastases to bladder [Fatal]
  - Metastases to bone [Fatal]
  - Papilloma viral infection [Fatal]
  - Adenocarcinoma of the cervix [Fatal]
  - Metastases to pleura [Fatal]
  - Metastases to lung [Fatal]
  - Metastases to liver [Fatal]
